FAERS Safety Report 6533464-8 (Version None)
Quarter: 2010Q1

REPORT INFORMATION
  Report Type: 
  Country: None (occurrence: None)
  Receive Date: 20100111
  Receipt Date: 20090930
  Transmission Date: 20100710
  Serious: No
  Sender: FDA-Public Use
  Company Number: A0808734A

PATIENT
  Age: 82 Year
  Sex: Male

DRUGS (4)
  1. REQUIP XL [Suspect]
     Indication: PARKINSON'S DISEASE
     Dosage: 6MG IN THE MORNING
     Route: 048
     Dates: start: 20090415, end: 20090515
  2. LOVENOX [Suspect]
     Indication: COAGULOPATHY
     Dosage: 40MG PER DAY
     Route: 042
     Dates: start: 20090801
  3. ROPINIROLE [Concomitant]
     Indication: PARKINSON'S DISEASE
     Dosage: 1MG THREE TIMES PER DAY
     Route: 048
  4. THALIDOMIDE [Concomitant]

REACTIONS (6)
  - ERYTHEMA [None]
  - OEDEMA PERIPHERAL [None]
  - PALMAR ERYTHEMA [None]
  - RASH [None]
  - SKIN TIGHTNESS [None]
  - TREATMENT NONCOMPLIANCE [None]
